FAERS Safety Report 24176115 (Version 1)
Quarter: 2024Q3

REPORT INFORMATION
  Report Type: Spontaneous
  Country: US (occurrence: US)
  Receive Date: 20240806
  Receipt Date: 20240806
  Transmission Date: 20241016
  Serious: No
  Sender: ROCHE
  Company Number: US-ROCHE-10000047310

PATIENT
  Age: 11 Year
  Sex: Male

DRUGS (1)
  1. HEMLIBRA [Suspect]
     Active Substance: EMICIZUMAB-KXWH
     Indication: Factor VIII deficiency
     Dosage: FREQUENCY: EVERY TWO WEEK, THERAPY :ONGOING
     Route: 058
     Dates: start: 201810

REACTIONS (3)
  - Fall [Unknown]
  - Joint swelling [Unknown]
  - Scratch [Unknown]

NARRATIVE: CASE EVENT DATE: 20240719
